FAERS Safety Report 10456245 (Version 4)
Quarter: 2014Q4

REPORT INFORMATION
  Report Type: Spontaneous
  Country: JP (occurrence: JP)
  Receive Date: 20140916
  Receipt Date: 20141008
  Transmission Date: 20150528
  Serious: Yes (Other)
  Sender: FDA-Public Use
  Company Number: JP-JNJFOC-20140820973

PATIENT
  Age: 76 Year
  Sex: Male

DRUGS (1)
  1. TRAMCET [Suspect]
     Active Substance: ACETAMINOPHEN\TRAMADOL
     Indication: CANCER PAIN
     Dosage: 4 TIMES A DAY
     Route: 048
     Dates: end: 20140819

REACTIONS (4)
  - Malignant neoplasm progression [Unknown]
  - Pain [Unknown]
  - Wrong technique in drug usage process [Unknown]
  - Product use issue [Unknown]
